FAERS Safety Report 22751686 (Version 2)
Quarter: 2023Q4

REPORT INFORMATION
  Report Type: Spontaneous
  Country: US (occurrence: US)
  Receive Date: 20230726
  Receipt Date: 20231024
  Transmission Date: 20240109
  Serious: Yes (Other)
  Sender: FDA-Public Use
  Company Number: US-drreddys-SPO/USA/23/0170914

PATIENT
  Age: 3 Decade
  Sex: Female

DRUGS (5)
  1. DOXORUBICIN HYDROCHLORIDE [Suspect]
     Active Substance: DOXORUBICIN HYDROCHLORIDE
     Indication: Ewing^s sarcoma
     Dosage: STANDARD SCHEDULE OF EVERY THREE WEEKS
  2. CYCLOPHOSPHAMIDE [Suspect]
     Active Substance: CYCLOPHOSPHAMIDE
     Indication: Ewing^s sarcoma
     Dosage: STANDARD SCHEDULE OF EVERY THREE WEEKS
  3. VINCRISTINE [Suspect]
     Active Substance: VINCRISTINE
     Indication: Ewing^s sarcoma
     Dosage: STANDARD SCHEDULE OF EVERY THREE WEEKS
  4. ETOPOSIDE [Suspect]
     Active Substance: ETOPOSIDE
     Indication: Ewing^s sarcoma
     Dosage: STANDARD SCHEDULE OF EVERY THREE WEEKS
  5. IFOSFAMIDE [Suspect]
     Active Substance: IFOSFAMIDE
     Indication: Ewing^s sarcoma
     Dosage: STANDARD SCHEDULE OF EVERY THREE WEEKS

REACTIONS (5)
  - Acidosis [Unknown]
  - Febrile neutropenia [Unknown]
  - Anaemia [Unknown]
  - Anxiety [Unknown]
  - Product use in unapproved indication [Unknown]
